FAERS Safety Report 16070639 (Version 1)
Quarter: 2019Q1

REPORT INFORMATION
  Report Type: Spontaneous
  Country: DE (occurrence: DE)
  Receive Date: 20190314
  Receipt Date: 20190314
  Transmission Date: 20190418
  Serious: Yes (Other)
  Sender: FDA-Public Use
  Company Number: DE-AUROBINDO-AUR-APL-2019-012751

PATIENT

DRUGS (4)
  1. CIPROFLOXACIN. [Suspect]
     Active Substance: CIPROFLOXACIN
     Dosage: 10 DOSAGE FORM,IN TOTAL,JUNI 2012 CIPRO 10 TABL.
     Route: 065
     Dates: start: 201206
  2. CIPROFLOXACIN. [Suspect]
     Active Substance: CIPROFLOXACIN
     Indication: PRODUCT USED FOR UNKNOWN INDICATION
     Dosage: 20 DOSAGE FORM, IN TOTAL,MAERZ 2012 CIPRO 20 TABL.
     Route: 048
     Dates: start: 20120312
  3. L-THYROXIN [Concomitant]
     Active Substance: LEVOTHYROXINE SODIUM
     Indication: HYPOTHYROIDISM
     Dosage: UNK
     Route: 065
     Dates: start: 2017
  4. LEVOFLOXACIN FILMCOATED TABLET [Suspect]
     Active Substance: LEVOFLOXACIN
     Indication: PRODUCT USED FOR UNKNOWN INDICATION
     Dosage: 5 DOSAGE FORM, IN TOTAL,APRIL 2012 LEVOFLOXACIN 5 TABL.
     Route: 065
     Dates: start: 201204

REACTIONS (9)
  - Depression [Unknown]
  - Pain in extremity [Unknown]
  - Pain [Unknown]
  - Adverse reaction [Not Recovered/Not Resolved]
  - Arrhythmia [Unknown]
  - Atrial fibrillation [Recovered/Resolved]
  - Myalgia [Not Recovered/Not Resolved]
  - Suicidal ideation [Unknown]
  - Gait disturbance [Unknown]

NARRATIVE: CASE EVENT DATE: 2012
